FAERS Safety Report 5906791-2 (Version None)
Quarter: 2008Q3

REPORT INFORMATION
  Report Type: 
  Country: None (occurrence: None)
  Receive Date: 20080929
  Receipt Date: 20080813
  Transmission Date: 20090109
  Serious: Yes (Other)
  Sender: FDA-Public Use
  Company Number: ADE# 08-127

PATIENT
  Age: 61 Year
  Sex: Female
  Weight: 56.6996 kg

DRUGS (8)
  1. EXTENDED PHENYTOIN SODIUM CAPSULES, USP, 100MG [Suspect]
     Indication: CONVULSION PROPHYLAXIS
     Dosage: 350MG DAILY
     Dates: start: 20080623, end: 20080723
  2. PAROXETINE HCL [Concomitant]
  3. BENICAR HCT [Concomitant]
  4. SYNTHROID [Concomitant]
  5. ASPIRIN [Concomitant]
  6. VITAMIN B6 [Concomitant]
  7. FISH OIL [Concomitant]
  8. SENIOR MULTI VITAMIN [Concomitant]

REACTIONS (15)
  - ANTICONVULSANT DRUG LEVEL INCREASED [None]
  - BALANCE DISORDER [None]
  - DEPRESSION [None]
  - DIARRHOEA [None]
  - DIPLOPIA [None]
  - DRUG TOXICITY [None]
  - DRUG WITHDRAWAL SYNDROME [None]
  - FEELING HOT [None]
  - HYPERHIDROSIS [None]
  - MEMORY IMPAIRMENT [None]
  - PSYCHOMOTOR HYPERACTIVITY [None]
  - SYNCOPE [None]
  - THERAPEUTIC RESPONSE UNEXPECTED WITH DRUG SUBSTITUTION [None]
  - TREMOR [None]
  - VOMITING [None]
